FAERS Safety Report 7384211-1 (Version None)
Quarter: 2011Q1

REPORT INFORMATION
  Report Type: 
  Country: None (occurrence: None)
  Receive Date: 20110330
  Receipt Date: 20110316
  Transmission Date: 20110831
  Serious: Yes (Hospitalization)
  Sender: FDA-Public Use
  Company Number: CA-JNJFOC-20110308011

PATIENT
  Sex: Female
  Weight: 60 kg

DRUGS (8)
  1. CIPRO [Concomitant]
  2. CALCIUM [Concomitant]
  3. VITAMIN D [Concomitant]
  4. TOBRAMYCIN [Concomitant]
  5. EFFEXOR [Concomitant]
  6. REMICADE [Suspect]
     Indication: CROHN'S DISEASE
     Route: 042
  7. FLAGYL [Concomitant]
  8. MEDROXYPROGESTERONE [Concomitant]

REACTIONS (1)
  - HYSTERECTOMY [None]
